FAERS Safety Report 6167145-X (Version None)
Quarter: 2009Q2

REPORT INFORMATION
  Report Type: 
  Country: None (occurrence: None)
  Receive Date: 20090424
  Receipt Date: 20090421
  Transmission Date: 20091009
  Serious: Yes (Life-Threatening)
  Sender: FDA-Public Use
  Company Number: IT-MERCK-0903ITA00003

PATIENT
  Age: 44 Year
  Sex: Female

DRUGS (1)
  1. NOROXIN [Suspect]
     Route: 048
     Dates: start: 20090226, end: 20090226

REACTIONS (4)
  - ANAPHYLACTIC SHOCK [None]
  - ANGIOEDEMA [None]
  - HEADACHE [None]
  - LOSS OF CONSCIOUSNESS [None]
